FAERS Safety Report 23684129 (Version 1)
Quarter: 2024Q1

REPORT INFORMATION
  Report Type: Spontaneous
  Country: PT (occurrence: PT)
  Receive Date: 20240328
  Receipt Date: 20240328
  Transmission Date: 20240410
  Serious: Yes (Hospitalization, Other)
  Sender: FDA-Public Use
  Company Number: PT-PIRAMAL PHARMA LIMITED-2024-PPL-000188

PATIENT
  Age: 37 Year
  Sex: Female

DRUGS (4)
  1. ROPIVACAINE [Suspect]
     Active Substance: ROPIVACAINE
     Indication: Epidural analgesia
     Dosage: 8 MILLILITER
     Route: 008
  2. ROPIVACAINE [Suspect]
     Active Substance: ROPIVACAINE
     Dosage: 15 MILLIGRAM PER MILLILITRE
     Route: 008
  3. SUFENTANIL [Suspect]
     Active Substance: SUFENTANIL
     Indication: Epidural analgesia
     Dosage: 2 MILLILITER
     Route: 008
  4. SUFENTANIL [Suspect]
     Active Substance: SUFENTANIL
     Dosage: 0.2 MILLIGRAM PER MILLILITRE
     Route: 008

REACTIONS (8)
  - Amyotrophy [Recovered/Resolved]
  - Dysaesthesia [Recovered/Resolved]
  - Gait disturbance [Recovered/Resolved]
  - Neuralgia [Recovered/Resolved]
  - Neuropathy peripheral [Recovered/Resolved]
  - Hypoaesthesia [Recovering/Resolving]
  - Inadequate analgesia [Recovered/Resolved]
  - Maternal exposure during delivery [Unknown]
